FAERS Safety Report 8314533-9 (Version None)
Quarter: 2012Q2

REPORT INFORMATION
  Report Type: 
  Country: None (occurrence: None)
  Receive Date: 20120426
  Receipt Date: 20120412
  Transmission Date: 20120825
  Serious: Yes (Hospitalization)
  Sender: FDA-Public Use
  Company Number: GB-ROCHE-1059000

PATIENT
  Sex: Male
  Weight: 72 kg

DRUGS (8)
  1. AVASTIN [Suspect]
     Indication: GASTRIC CANCER
     Route: 042
     Dates: start: 20120125
  2. ONDANSETRON [Concomitant]
     Dates: start: 20120125
  3. XELODA [Suspect]
     Indication: GASTRIC CANCER
     Route: 048
     Dates: start: 20120125
  4. CISPLATIN [Suspect]
     Indication: GASTRIC CANCER
     Dosage: DATE OF LAST DOSE PRIOR TO SAE:15/02/2012
     Route: 042
     Dates: start: 20120125
  5. DEXAMETHASONE [Concomitant]
     Dates: start: 20120125
  6. OMEPRAZOLE [Concomitant]
     Dates: start: 20120125
  7. METOCLOPRAMIDE [Concomitant]
     Dates: start: 20120125
  8. EPIRUBICIN HYDROCHLORIDE [Suspect]
     Indication: GASTRIC CANCER
     Dosage: DATE OF LAST DOSE PRIOR TO SAE:15/02/2012
     Route: 042
     Dates: start: 20120125

REACTIONS (1)
  - CHONDROCALCINOSIS PYROPHOSPHATE [None]
